FAERS Safety Report 24683783 (Version 1)
Quarter: 2024Q4

REPORT INFORMATION
  Report Type: Spontaneous
  Country: CN (occurrence: CN)
  Receive Date: 20241202
  Receipt Date: 20241202
  Transmission Date: 20250115
  Serious: Yes (Other)
  Sender: ABBVIE
  Company Number: CN-ABBVIE-6023982

PATIENT
  Age: 73 Year
  Sex: Female
  Weight: 44 kg

DRUGS (4)
  1. VENETOCLAX [Suspect]
     Active Substance: VENETOCLAX
     Indication: Neoplasm malignant
     Dosage: DAY 1
     Route: 048
     Dates: start: 20240907, end: 20240907
  2. VENETOCLAX [Suspect]
     Active Substance: VENETOCLAX
     Indication: Neoplasm malignant
     Dosage: DAY 2
     Route: 048
     Dates: start: 20240908, end: 20240908
  3. VENETOCLAX [Suspect]
     Active Substance: VENETOCLAX
     Indication: Neoplasm malignant
     Dosage: DAY 3
     Route: 048
     Dates: start: 20240909, end: 20240909
  4. AZACITIDINE [Suspect]
     Active Substance: AZACITIDINE
     Indication: Neoplasm malignant
     Dosage: D1-7, DISSOLVED IN 4 ML STERILE WATER FOR INJECTION FOR CHEMOTHERAPY
     Route: 058
     Dates: start: 20240907, end: 20240913

REACTIONS (3)
  - Acute leukaemia [Unknown]
  - Pyrexia [Unknown]
  - Granulocyte count decreased [Recovering/Resolving]

NARRATIVE: CASE EVENT DATE: 20240101
